FAERS Safety Report 10360167 (Version 2)
Quarter: 2014Q4

REPORT INFORMATION
  Report Type: Spontaneous
  Country: IT (occurrence: None)
  Receive Date: 20140730
  Receipt Date: 20141022
  Transmission Date: 20150528
  Serious: Yes (Other)
  Sender: FDA-Public Use
  Company Number: 2014AP003694

PATIENT
  Age: 35 Year
  Sex: Female

DRUGS (5)
  1. L-THYROXINE (LEVOTHYROXINE) [Concomitant]
     Active Substance: LEVOTHYROXINE
  2. FERRIPROX [Suspect]
     Active Substance: DEFERIPRONE
     Indication: THALASSAEMIA BETA
     Route: 048
     Dates: start: 20140516, end: 20140516
  3. BISOPROLOL HEMIFUMARATE (BISOPROLOL FUMARATE) [Concomitant]
  4. FERRIPROX [Suspect]
     Active Substance: DEFERIPRONE
     Indication: TRANSFUSION
     Route: 048
     Dates: start: 20140516, end: 20140516
  5. FERRIPROX [Suspect]
     Active Substance: DEFERIPRONE
     Indication: IRON OVERLOAD
     Route: 048
     Dates: start: 20140516, end: 20140516

REACTIONS (3)
  - Overdose [None]
  - Neutropenia [None]
  - Medication error [None]

NARRATIVE: CASE EVENT DATE: 20140516
